FAERS Safety Report 8842020 (Version 1)
Quarter: 2012Q4

REPORT INFORMATION
  Report Type: 
  Country: US (occurrence: US)
  Receive Date: 20121016
  Receipt Date: 20121016
  Transmission Date: 20130627
  Serious: Yes (Other)
  Sender: FDA-Public Use
  Company Number: US-JNJFOC-20121005429

PATIENT
  Age: 53 Year
  Sex: Female
  Weight: 71.67 kg

DRUGS (5)
  1. TOPAMAX [Suspect]
     Indication: MIGRAINE
     Dosage: 100 mg in A.M , 100 mg in P.M
     Route: 048
     Dates: start: 201203, end: 20121004
  2. TOPAMAX [Suspect]
     Indication: CONVULSION
     Dosage: 100 mg in A.M , 100 mg in P.M
     Route: 048
     Dates: start: 201203, end: 20121004
  3. SAPHRIS [Suspect]
     Indication: PANIC ATTACK
     Route: 060
     Dates: start: 20121004, end: 2012
  4. SAPHRIS [Suspect]
     Indication: ANXIETY
     Route: 060
     Dates: start: 20121004, end: 2012
  5. SEROQUEL [Concomitant]
     Indication: SLEEP DISORDER
     Dosage: 200-400mg- once aday
     Route: 048
     Dates: start: 201202, end: 201209

REACTIONS (8)
  - Diplopia [Recovering/Resolving]
  - Vision blurred [Recovering/Resolving]
  - Anxiety [Recovering/Resolving]
  - Panic attack [Recovering/Resolving]
  - Back disorder [Recovering/Resolving]
  - Bone pain [Recovering/Resolving]
  - Feeling cold [Recovering/Resolving]
  - Muscle spasms [Recovering/Resolving]
